FAERS Safety Report 7362379-0 (Version None)
Quarter: 2011Q1

REPORT INFORMATION
  Report Type: 
  Country: None (occurrence: None)
  Receive Date: 20110318
  Receipt Date: 20110314
  Transmission Date: 20110831
  Serious: Yes (Hospitalization)
  Sender: FDA-Public Use
  Company Number: CA-MEDIMMUNE-MEDI-0012925

PATIENT
  Sex: Male
  Weight: 8.53 kg

DRUGS (2)
  1. SYNAGIS [Suspect]
     Dates: start: 20101029, end: 20101029
  2. SYNAGIS [Suspect]
     Dates: start: 20110312, end: 20110312

REACTIONS (4)
  - OXYGEN SATURATION DECREASED [None]
  - EAR INFECTION [None]
  - NASOPHARYNGITIS [None]
  - INSOMNIA [None]
